FAERS Safety Report 22196907 (Version 2)
Quarter: 2023Q2

REPORT INFORMATION
  Report Type: Other
  Country: CA (occurrence: None)
  Receive Date: 20230411
  Receipt Date: 20230417
  Transmission Date: 20230721
  Serious: Yes (Hospitalization)
  Sender: FDA-Public Use
  Company Number: CA-ROCHE-3328942

PATIENT
  Sex: Male

DRUGS (14)
  1. ACTEMRA [Suspect]
     Active Substance: TOCILIZUMAB
     Indication: Polychondritis
     Route: 042
     Dates: start: 20220810
  2. BREO ELLIPTA [Concomitant]
     Active Substance: FLUTICASONE FUROATE\VILANTEROL TRIFENATATE
     Dosage: INHALER
  3. PERINDOPRIL [Concomitant]
     Active Substance: PERINDOPRIL
  4. EFFEXOR [Concomitant]
     Active Substance: VENLAFAXINE HYDROCHLORIDE
     Indication: Stress
  5. FROVA [Concomitant]
     Active Substance: FROVATRIPTAN SUCCINATE
     Route: 045
  6. IMITREX [Concomitant]
     Active Substance: SUMATRIPTAN SUCCINATE
  7. MAXALT [Concomitant]
     Active Substance: RIZATRIPTAN BENZOATE
  8. METHOTREXATE [Concomitant]
     Active Substance: METHOTREXATE
     Route: 048
  9. PANTOPRAZOLE [Concomitant]
     Active Substance: PANTOPRAZOLE
  10. PREDNISONE [Concomitant]
     Active Substance: PREDNISONE
  11. PREDNISONE [Concomitant]
     Active Substance: PREDNISONE
  12. RELPAX [Concomitant]
     Active Substance: ELETRIPTAN HYDROBROMIDE
  13. VITAMIN C [Concomitant]
     Active Substance: ASCORBIC ACID
  14. ZOMIG [Concomitant]
     Active Substance: ZOLMITRIPTAN

REACTIONS (1)
  - Colopathy [Unknown]
